FAERS Safety Report 4807534-6 (Version None)
Quarter: 2005Q4

REPORT INFORMATION
  Report Type: 
  Country: None (occurrence: None)
  Receive Date: 20051024
  Receipt Date: 20051010
  Transmission Date: 20060501
  Serious: Yes (Other)
  Sender: FDA-Public Use
  Company Number: CH-ROCHE-420643

PATIENT
  Sex: Female
  Weight: 2.7 kg

DRUGS (1)
  1. XENICAL [Suspect]
     Indication: OBESITY
     Dates: end: 20040919

REACTIONS (4)
  - CAESAREAN SECTION [None]
  - DRUG EXPOSURE DURING PREGNANCY [None]
  - OLIGOHYDRAMNIOS [None]
  - PREGNANCY [None]
